FAERS Safety Report 10068904 (Version 3)
Quarter: 2014Q2

REPORT INFORMATION
  Report Type: Spontaneous
  Country: US (occurrence: US)
  Receive Date: 20140409
  Receipt Date: 20140519
  Transmission Date: 20141212
  Serious: Yes (Other)
  Sender: FDA-Public Use
  Company Number: US-PFIZER INC-2014099080

PATIENT
  Age: 73 Year
  Sex: Female

DRUGS (3)
  1. CELEBREX [Suspect]
     Indication: ARTHRALGIA
     Dosage: 200 MG, UNK
     Dates: start: 201301
  2. CELEBREX [Suspect]
     Indication: INFLAMMATION
  3. CELEBREX [Suspect]
     Indication: ARTHRITIS

REACTIONS (4)
  - Foot fracture [Unknown]
  - Joint injury [Unknown]
  - Rotator cuff syndrome [Unknown]
  - Foot fracture [Unknown]
